FAERS Safety Report 4972653-0 (Version None)
Quarter: 2006Q1

REPORT INFORMATION
  Report Type: 
  Country: None (occurrence: None)
  Receive Date: 20060216
  Receipt Date: 20051024
  Transmission Date: 20060701
  Serious: Yes (Hospitalization)
  Sender: FDA-Public Use
  Company Number: 200510IM000654

PATIENT
  Age: 73 Year
  Sex: Female
  Weight: 78.5 kg

DRUGS (13)
  1. BLINDED THERAPY (INTERFERON GAMMA-1B) [Suspect]
     Indication: IDIOPATHIC PULMONARY FIBROSIS
     Dosage: 100 UG, TIW, SUBCUTANEOUS;200 UG, TIW,SUBCUTANEOUS;100 UG,TIW, SUBCUTANEOUS
     Route: 058
     Dates: start: 20040901, end: 20040914
  2. BLINDED THERAPY (INTERFERON GAMMA-1B) [Suspect]
     Indication: IDIOPATHIC PULMONARY FIBROSIS
     Dosage: 100 UG, TIW, SUBCUTANEOUS;200 UG, TIW,SUBCUTANEOUS;100 UG,TIW, SUBCUTANEOUS
     Route: 058
     Dates: start: 20040915, end: 20050902
  3. BLINDED THERAPY (INTERFERON GAMMA-1B) [Suspect]
     Indication: IDIOPATHIC PULMONARY FIBROSIS
     Dosage: 100 UG, TIW, SUBCUTANEOUS;200 UG, TIW,SUBCUTANEOUS;100 UG,TIW, SUBCUTANEOUS
     Route: 058
     Dates: start: 20050919, end: 20051031
  4. ARTHROTEC [Concomitant]
  5. LEVOTHYROXINE SODIUM [Concomitant]
  6. PRINZIDE 10/12.5 [Concomitant]
  7. OXYBUTYNIN [Concomitant]
  8. LOSEC [Concomitant]
  9. MULTIVITAMIN [Concomitant]
  10. TYLENOL W/ CODEINE NO. 3 [Concomitant]
  11. TRAZODONE HCL [Concomitant]
  12. ACETAMINOPHEN [Concomitant]
  13. VITAMIN B-12 [Concomitant]

REACTIONS (1)
  - ASTHENIA [None]
